FAERS Safety Report 13517477 (Version 2)
Quarter: 2017Q3

REPORT INFORMATION
  Report Type: Spontaneous
  Country: GB (occurrence: GB)
  Receive Date: 20170505
  Receipt Date: 20170721
  Transmission Date: 20171127
  Serious: Yes (Disabling, Other)
  Sender: FDA-Public Use
  Company Number: GB-WEST-WARD PHARMACEUTICALS CORP.-GB-H14001-17-01374

PATIENT
  Sex: Male

DRUGS (1)
  1. CIPROFLOXACIN. [Suspect]
     Active Substance: CIPROFLOXACIN
     Indication: PRODUCT USED FOR UNKNOWN INDICATION
     Route: 065

REACTIONS (4)
  - Muscle twitching [Unknown]
  - Muscle swelling [Unknown]
  - Palpitations [Unknown]
  - Pain [Unknown]
